FAERS Safety Report 12548826 (Version 1)
Quarter: 2016Q3

REPORT INFORMATION
  Report Type: Spontaneous
  Country: JP (occurrence: JP)
  Receive Date: 20160712
  Receipt Date: 20160712
  Transmission Date: 20161109
  Serious: Yes (Other)
  Sender: FDA-Public Use
  Company Number: JP-GLAXOSMITHKLINE-JP2016JPN096138

PATIENT
  Age: 73 Year
  Sex: Male

DRUGS (26)
  1. NOURIAST [Suspect]
     Active Substance: ISTRADEFYLLINE
     Indication: PARKINSON^S DISEASE
     Dosage: 20 MG, QD
     Route: 048
     Dates: start: 20130710
  2. METHYCOOL [Concomitant]
     Active Substance: METHYLCOBALAMIN
     Dosage: UNK
  3. AMLODIPINE BESILATE [Concomitant]
     Active Substance: AMLODIPINE BESYLATE
     Dosage: UNK
  4. REQUIP [Suspect]
     Active Substance: ROPINIROLE HYDROCHLORIDE
     Indication: PROPHYLAXIS
     Dosage: 4 MG, BID
     Route: 048
     Dates: start: 20141119
  5. ROTIGOTINE [Suspect]
     Active Substance: ROTIGOTINE
     Dosage: 9 MG, 1D
     Route: 050
     Dates: start: 20140401, end: 20140414
  6. MIRAPEX [Suspect]
     Active Substance: PRAMIPEXOLE DIHYDROCHLORIDE
     Indication: PROPHYLAXIS
     Dosage: 0.75 MG, BID
     Route: 048
     Dates: start: 20140527
  7. GANATON [Concomitant]
     Active Substance: ITOPRIDE
     Dosage: UNK
  8. RHYTHMY [Concomitant]
     Active Substance: RILMAZAFONE HYDROCHLORIDE
     Dosage: UNK
     Dates: start: 20140526
  9. ROTIGOTINE [Suspect]
     Active Substance: ROTIGOTINE
     Dosage: 13.5 MG, 1D
     Route: 050
     Dates: start: 20140415, end: 20140512
  10. MIRAPEX [Suspect]
     Active Substance: PRAMIPEXOLE DIHYDROCHLORIDE
     Indication: PARKINSON^S DISEASE
     Dosage: 4.5 MG, QD
     Route: 048
     Dates: end: 20140526
  11. FP-OD [Suspect]
     Active Substance: SELEGILINE HYDROCHLORIDE
     Indication: PARKINSON^S DISEASE
     Dosage: 2.5 MG, QD
     Route: 048
  12. TRERIEF [Suspect]
     Active Substance: ZONISAMIDE
     Indication: PARKINSON^S DISEASE
     Dosage: 50 MG, QD
     Route: 048
     Dates: start: 20140428
  13. MAGMITT [Concomitant]
     Active Substance: MAGNESIUM OXIDE
     Dosage: UNK
     Dates: start: 20131106
  14. BROTIZOLAM [Concomitant]
     Active Substance: BROTIZOLAM
     Dosage: UNK
     Dates: end: 20140525
  15. URIEF [Concomitant]
     Active Substance: SILODOSIN
     Dosage: UNK
     Dates: start: 20140512
  16. RINDERON VG [Concomitant]
     Active Substance: BETAMETHASONE VALERATE\GENTAMICIN SULFATE
     Dosage: UNK
     Dates: start: 20140623, end: 20140923
  17. HEPARINOID [Concomitant]
     Active Substance: CHONDROITIN SULFATE (BOVINE)
     Dosage: UNK
     Dates: start: 20140924
  18. ROTIGOTINE [Suspect]
     Active Substance: ROTIGOTINE
     Indication: PARKINSON^S DISEASE
     Dosage: 2.25 MG, 1D
     Route: 050
     Dates: start: 20140217, end: 20140303
  19. ROTIGOTINE [Suspect]
     Active Substance: ROTIGOTINE
     Dosage: 4.5 MG, 1D
     Route: 050
     Dates: start: 20140304, end: 20140331
  20. ROTIGOTINE [Suspect]
     Active Substance: ROTIGOTINE
     Dosage: 18 MG, 1D
     Route: 050
     Dates: start: 20140513, end: 20141226
  21. ROTIGOTINE [Suspect]
     Active Substance: ROTIGOTINE
     Dosage: 22.5 MG, 1D
     Route: 050
     Dates: start: 20141227
  22. FAMOTIDINE. [Concomitant]
     Active Substance: FAMOTIDINE
     Dosage: UNK
  23. REQUIP [Suspect]
     Active Substance: ROPINIROLE HYDROCHLORIDE
     Indication: PARKINSON^S DISEASE
     Dosage: 16 MG, QD
     Route: 048
     Dates: end: 20141118
  24. MENESIT [Suspect]
     Active Substance: CARBIDOPA\LEVODOPA
     Indication: PARKINSON^S DISEASE
     Dosage: 150 MG, QID
     Route: 048
  25. COMTAN [Suspect]
     Active Substance: ENTACAPONE
     Indication: PARKINSON^S DISEASE
     Dosage: 100 MG, TID
     Route: 048
  26. MICARDIS [Concomitant]
     Active Substance: TELMISARTAN
     Dosage: UNK
     Dates: start: 20131128

REACTIONS (3)
  - Benign prostatic hyperplasia [Recovering/Resolving]
  - Dyskinesia [Recovering/Resolving]
  - Insomnia [Recovering/Resolving]

NARRATIVE: CASE EVENT DATE: 20140512
